FAERS Safety Report 5979170-X (Version None)
Quarter: 2008Q4

REPORT INFORMATION
  Report Type: 
  Country: None (occurrence: None)
  Receive Date: 20081204
  Receipt Date: 20080408
  Transmission Date: 20090506
  Serious: No
  Sender: FDA-Public Use
  Company Number: US-ABBOTT-08P-163-0446231-00

PATIENT
  Sex: Male
  Weight: 70.37 kg

DRUGS (1)
  1. TRICOR [Suspect]
     Indication: BLOOD TRIGLYCERIDES INCREASED
     Route: 048
     Dates: start: 20070401, end: 20080105

REACTIONS (4)
  - ABDOMINAL PAIN UPPER [None]
  - GALLBLADDER PAIN [None]
  - PRURITUS [None]
  - RASH [None]
